FAERS Safety Report 17593241 (Version 8)
Quarter: 2023Q1

REPORT INFORMATION
  Report Type: Spontaneous
  Country: PT (occurrence: PT)
  Receive Date: 20200327
  Receipt Date: 20230313
  Transmission Date: 20230417
  Serious: Yes (Life-Threatening, Hospitalization, Other)
  Sender: FDA-Public Use
  Company Number: PT-ASTELLAS-2020US005687

PATIENT
  Age: 49 Year
  Sex: Male

DRUGS (12)
  1. AMOXICILLIN\CLAVULANIC ACID [Suspect]
     Active Substance: AMOXICILLIN\CLAVULANIC ACID
     Indication: Tonsillitis
     Dosage: 1000 MILLIGRAM, BID (875MG+125MG EVERY 12HOURS FOR 8DAY)
     Route: 048
  2. AMOXICILLIN\CLAVULANIC ACID [Suspect]
     Active Substance: AMOXICILLIN\CLAVULANIC ACID
     Indication: Odynophagia
     Dosage: UNK UNK, UNKNOWN FREQ.
     Route: 065
  3. AMOXICILLIN\CLAVULANIC ACID [Suspect]
     Active Substance: AMOXICILLIN\CLAVULANIC ACID
     Dosage: UNK
     Route: 065
  4. AMOXICILLIN\CLAVULANIC ACID [Suspect]
     Active Substance: AMOXICILLIN\CLAVULANIC ACID
     Dosage: UNK
     Route: 065
  5. AMOXICILLIN\CLAVULANIC ACID [Suspect]
     Active Substance: AMOXICILLIN\CLAVULANIC ACID
     Dosage: UNK
     Route: 065
  6. AMOXICILLIN\CLAVULANIC ACID [Suspect]
     Active Substance: AMOXICILLIN\CLAVULANIC ACID
     Dosage: 1 DOSAGE FORM
     Route: 065
  7. AMOXICILLIN\CLAVULANIC ACID [Suspect]
     Active Substance: AMOXICILLIN\CLAVULANIC ACID
     Dosage: 1 DOSAGE FORM, SINGLE DOSE, TOTAL
     Route: 065
  8. IBUPROFEN [Suspect]
     Active Substance: IBUPROFEN
     Indication: Product used for unknown indication
     Dosage: 600 MILLIGRAM, BID (EVERY 12HOURS FOR 8DAY))
     Route: 048
  9. PERINDOPRIL [Suspect]
     Active Substance: PERINDOPRIL
     Indication: Product used for unknown indication
     Dosage: UNK
     Route: 065
  10. PERINDOPRIL [Suspect]
     Active Substance: PERINDOPRIL
     Indication: Hypertension
  11. DEFLAZACORT [Concomitant]
     Active Substance: DEFLAZACORT
     Indication: Tonsillitis
     Dosage: UNK
     Route: 065
  12. DEFLAZACORT [Concomitant]
     Active Substance: DEFLAZACORT
     Indication: Tonsillitis

REACTIONS (8)
  - Off label use [Unknown]
  - Anaphylactic reaction [Not Recovered/Not Resolved]
  - Drug hypersensitivity [Recovered/Resolved]
  - Type I hypersensitivity [Not Recovered/Not Resolved]
  - Dyspnoea [Recovered/Resolved]
  - Erythema [Recovered/Resolved]
  - Face oedema [Recovered/Resolved]
  - Pruritus [Recovered/Resolved]
